FAERS Safety Report 4435343-9 (Version None)
Quarter: 2004Q3

REPORT INFORMATION
  Report Type: 
  Country: None (occurrence: None)
  Receive Date: 20040827
  Receipt Date: 20040818
  Transmission Date: 20050211
  Serious: Yes (Death)
  Sender: FDA-Public Use
  Company Number: PHBS2004JP10876

PATIENT
  Age: 46 Year
  Sex: Female

DRUGS (4)
  1. CYCLOSPORINE [Suspect]
     Indication: HEPATITIS B
     Route: 065
  2. LAMIVUDINE [Concomitant]
  3. STEROIDS NOS [Concomitant]
  4. PLASMA [Concomitant]

REACTIONS (1)
  - HEPATITIS B [None]
